FAERS Safety Report 6092323-8 (Version None)
Quarter: 2009Q1

REPORT INFORMATION
  Report Type: 
  Country: None (occurrence: None)
  Receive Date: 20090225
  Receipt Date: 20090213
  Transmission Date: 20090719
  Serious: Yes (Other)
  Sender: FDA-Public Use
  Company Number: GB-ABBOTT-09P-167-0499040-00

PATIENT
  Sex: Female

DRUGS (3)
  1. HUMIRA [Suspect]
     Indication: PSORIATIC ARTHROPATHY
     Dosage: FORNIGHTLY
     Route: 058
     Dates: start: 20070612
  2. HUMIRA [Suspect]
  3. MACRODANTIN [Concomitant]

REACTIONS (1)
  - GLOSSODYNIA [None]
